FAERS Safety Report 4575515-6 (Version None)
Quarter: 2005Q1

REPORT INFORMATION
  Report Type: 
  Country: None (occurrence: None)
  Receive Date: 20050131
  Receipt Date: 20050131
  Transmission Date: 20050727
  Serious: Yes (Other)
  Sender: FDA-Public Use
  Company Number: None

PATIENT
  Age: 51 Year
  Sex: Male
  Weight: 100.6985 kg

DRUGS (4)
  1. RITUXIMAB [Suspect]
     Indication: CRYOGLOBULINAEMIA
     Dosage: 1000MG IV X 2
     Route: 042
     Dates: start: 20041005
  2. RITUXIMAB [Suspect]
     Indication: VASCULITIS
     Dosage: 1000MG IV X 2
     Route: 042
     Dates: start: 20041005
  3. RITUXIMAB [Suspect]
     Indication: CRYOGLOBULINAEMIA
     Dosage: 1000MG IV X 2
     Route: 042
     Dates: start: 20041019
  4. RITUXIMAB [Suspect]
     Indication: VASCULITIS
     Dosage: 1000MG IV X 2
     Route: 042
     Dates: start: 20041019

REACTIONS (3)
  - DRUG TOXICITY [None]
  - HEPATITIS C [None]
  - LIVER FUNCTION TEST ABNORMAL [None]
